FAERS Safety Report 13439150 (Version 1)
Quarter: 2017Q2

REPORT INFORMATION
  Report Type: Spontaneous
  Country: US (occurrence: US)
  Receive Date: 20170413
  Receipt Date: 20170413
  Transmission Date: 20170830
  Serious: No
  Sender: FDA-Public Use
  Company Number: US-ROCHE-1094635

PATIENT
  Age: 74 Year
  Sex: Male

DRUGS (2)
  1. XENICAL [Suspect]
     Active Substance: ORLISTAT
     Indication: WEIGHT DECREASED
     Route: 048
  2. XENICAL [Suspect]
     Active Substance: ORLISTAT
     Route: 048

REACTIONS (6)
  - Diarrhoea [Recovered/Resolved]
  - Faecal volume decreased [Not Recovered/Not Resolved]
  - Drug administration error [Unknown]
  - Product packaging quantity issue [Unknown]
  - Accident [Unknown]
  - Product quality issue [Unknown]
